FAERS Safety Report 10289574 (Version 1)
Quarter: 2014Q3

REPORT INFORMATION
  Report Type: Spontaneous
  Country: US (occurrence: None)
  Receive Date: 20140707
  Receipt Date: 20140707
  Transmission Date: 20150326
  Serious: Yes (Disabling)
  Sender: FDA-Public Use
  Company Number: None

PATIENT
  Age: 34 Year
  Sex: Female

DRUGS (1)
  1. CEPHALEXIN 500MG [Suspect]
     Active Substance: CEPHALEXIN
     Indication: URINARY TRACT INFECTION
     Dosage: 4 PILLS
     Route: 048
     Dates: start: 20140627, end: 20140703

REACTIONS (14)
  - Joint swelling [None]
  - Pain in extremity [None]
  - Hypoaesthesia [None]
  - Feeling hot [None]
  - Headache [None]
  - Nausea [None]
  - Vomiting [None]
  - Eye pruritus [None]
  - Eyelid oedema [None]
  - Pulmonary congestion [None]
  - Fluid retention [None]
  - Throat irritation [None]
  - Rash pruritic [None]
  - Arthralgia [None]

NARRATIVE: CASE EVENT DATE: 20140627
